FAERS Safety Report 6786218-1 (Version None)
Quarter: 2010Q2

REPORT INFORMATION
  Report Type: 
  Country: None (occurrence: None)
  Receive Date: 20100623
  Receipt Date: 20100615
  Transmission Date: 20101027
  Serious: Yes (Hospitalization)
  Sender: FDA-Public Use
  Company Number: FR-ASTRAZENECA-2010SE28676

PATIENT
  Age: 772 Month
  Sex: Female

DRUGS (11)
  1. MOPRAL [Suspect]
     Route: 048
  2. ARAVA [Suspect]
     Indication: RHEUMATOID ARTHRITIS
     Route: 048
     Dates: start: 20020101, end: 20091210
  3. HUMIRA [Suspect]
     Route: 058
     Dates: start: 20090401, end: 20100301
  4. CITALOPRAM HYDROBROMIDE [Suspect]
     Indication: DEPRESSION
     Route: 048
  5. XANAX [Suspect]
     Indication: ANXIETY
     Route: 048
  6. RIVOTRIL [Suspect]
     Indication: SLEEP DISORDER
     Route: 048
  7. CORTANCYL [Suspect]
     Route: 048
  8. ACTONEL [Suspect]
     Route: 048
  9. TEMERIT [Suspect]
     Route: 048
  10. TAREG [Suspect]
     Indication: HYPERTENSION
     Route: 048
  11. DAFALGAN [Suspect]
     Dosage: 3 TO 4 GRAMS PER DAY
     Route: 048

REACTIONS (4)
  - DRUG INEFFECTIVE [None]
  - GASTROINTESTINAL DISORDER [None]
  - MUSCULAR WEAKNESS [None]
  - NEUROPATHY PERIPHERAL [None]
